FAERS Safety Report 13365131 (Version 1)
Quarter: 2017Q1

REPORT INFORMATION
  Report Type: Spontaneous
  Country: GB (occurrence: GB)
  Receive Date: 20170323
  Receipt Date: 20170323
  Transmission Date: 20170429
  Serious: Yes (Hospitalization)
  Sender: FDA-Public Use
  Company Number: GB-MYLANLABS-2017M1017207

PATIENT

DRUGS (3)
  1. DOXYCYCLINE MYLAN [Suspect]
     Active Substance: DOXYCYCLINE
     Indication: LOWER RESPIRATORY TRACT INFECTION
     Dosage: 200MG STAT AND 100MG DAILY
     Route: 048
     Dates: start: 20170123, end: 20170124
  2. LUPRON DEPOT [Concomitant]
     Active Substance: LEUPROLIDE ACETATE
  3. OMEPRAZOLE SODIUM [Concomitant]
     Active Substance: OMEPRAZOLE SODIUM

REACTIONS (3)
  - Peripheral swelling [Unknown]
  - Dyspnoea [Unknown]
  - Vasculitic rash [Not Recovered/Not Resolved]

NARRATIVE: CASE EVENT DATE: 20170123
